FAERS Safety Report 9536626 (Version 1)
Quarter: 2013Q3

REPORT INFORMATION
  Report Type: Spontaneous
  Country: FR (occurrence: FR)
  Receive Date: 20130919
  Receipt Date: 20130919
  Transmission Date: 20140515
  Serious: Yes (Other)
  Sender: FDA-Public Use
  Company Number: FR-MERCK-1309FRA004599

PATIENT
  Age: 79 Year
  Sex: Female

DRUGS (9)
  1. ZOLINZA [Suspect]
     Indication: MYCOSIS FUNGOIDES
     Dosage: 100 MG, BID
     Route: 048
     Dates: start: 201307, end: 20130829
  2. LEVOTHYROX [Concomitant]
  3. INEXIUM [Concomitant]
  4. LYRICA [Concomitant]
  5. PAROXETINE [Concomitant]
  6. SERESTA [Concomitant]
  7. AMLOR [Concomitant]
  8. ATARAX (HYDROXYZINE HYDROCHLORIDE) [Concomitant]
  9. CETIRIZINE HYDROCHLORIDE [Concomitant]

REACTIONS (1)
  - Myasthenic syndrome [Not Recovered/Not Resolved]
